FAERS Safety Report 20332364 (Version 1)
Quarter: 2022Q1

REPORT INFORMATION
  Report Type: Spontaneous
  Country: CA (occurrence: CA)
  Receive Date: 20220113
  Receipt Date: 20220113
  Transmission Date: 20220423
  Serious: Yes (Other)
  Sender: FDA-Public Use
  Company Number: CA-TEVA-2022-CA-1998486

PATIENT
  Age: 51 Year
  Sex: Male

DRUGS (1)
  1. ALBUTEROL [Suspect]
     Active Substance: ALBUTEROL
     Indication: Spirometry
     Route: 055

REACTIONS (4)
  - Chest discomfort [Unknown]
  - Throat irritation [Unknown]
  - Cough [Unknown]
  - Hypersensitivity [Unknown]
